FAERS Safety Report 5157737-9 (Version None)
Quarter: 2006Q4

REPORT INFORMATION
  Report Type: 
  Country: None (occurrence: None)
  Receive Date: 20061127
  Receipt Date: 20060906
  Transmission Date: 20070319
  Serious: Yes (Life-Threatening)
  Sender: FDA-Public Use
  Company Number: 2006AP04185

PATIENT
  Age: 32 Year
  Sex: Female

DRUGS (2)
  1. DIPRIVAN [Suspect]
     Indication: GENERAL ANAESTHESIA
     Route: 042
  2. FENTANEST [Concomitant]
     Indication: GENERAL ANAESTHESIA
     Route: 042

REACTIONS (5)
  - HAEMOGLOBIN DECREASED [None]
  - HYPONATRAEMIA [None]
  - METABOLIC ACIDOSIS [None]
  - PROCEDURAL COMPLICATION [None]
  - WATER INTOXICATION [None]
